FAERS Safety Report 17537087 (Version 1)
Quarter: 2020Q1

REPORT INFORMATION
  Report Type: Spontaneous
  Country: US (occurrence: US)
  Receive Date: 20200312
  Receipt Date: 20200312
  Transmission Date: 20200409
  Serious: No
  Sender: FDA-Public Use
  Company Number: None

PATIENT
  Sex: Female

DRUGS (1)
  1. ENOXAPARIN SOD SYRINGE 120MG/.8M WINTHROP, US [Suspect]
     Active Substance: ENOXAPARIN SODIUM
     Indication: CHOLANGIOCARCINOMA
     Route: 058
     Dates: start: 20200204

REACTIONS (1)
  - Injection site bruising [None]
